FAERS Safety Report 8721035 (Version 7)
Quarter: 2013Q1

REPORT INFORMATION
  Report Type: Report from Study
  Country: NO (occurrence: NO)
  Receive Date: 20120813
  Receipt Date: 20130201
  Transmission Date: 20140127
  Serious: Yes (Life-Threatening, Hospitalization)
  Sender: FDA-Public Use
  Company Number: PHHY2012NO068983

PATIENT
  Age: 14 Year
  Sex: Female
  Weight: 55 kg

DRUGS (15)
  1. ACZ885 [Suspect]
     Indication: JUVENILE IDIOPATHIC ARTHRITIS
     Dosage: 600 MG, EVERY 4 WEEKS
     Route: 058
     Dates: start: 20110501
  2. ACZ885 [Suspect]
     Dosage: 150 UNK, EVERY 3RD WEEK
     Route: 058
  3. ACZ885 [Suspect]
     Dosage: 300 UNK, EVERY 4 WEEKS
     Route: 058
     Dates: start: 201201
  4. PREDNISOLON [Concomitant]
     Indication: JUVENILE IDIOPATHIC ARTHRITIS
     Dosage: 10 MG, QD
  5. PREDNISOLON [Concomitant]
     Dosage: DOSE WAS REDUCED FROM 7,5 MG/DAY FROM 20120625
     Route: 048
     Dates: start: 2010
  6. FOLIC ACID [Concomitant]
     Dosage: 5 MG, UNK
  7. METHOTREXATE [Concomitant]
     Indication: JUVENILE IDIOPATHIC ARTHRITIS
     Dosage: 12 MG PER WEEK
  8. METHOTREXATE [Concomitant]
     Dosage: DRUG TEMPORARILY WITHDRAWN DURING HOSPITALISATION
     Route: 048
     Dates: start: 2010
  9. LOSEC [Concomitant]
  10. IBUX [Concomitant]
     Dosage: 400 MG, 200-400 MG AS REQUIRED.
     Route: 048
  11. IBUX [Concomitant]
     Dosage: 200-400 MG AS REQUIRED.
     Route: 048
  12. CHEMOTHERAPEUTICS NOS [Concomitant]
  13. NSAID^S [Concomitant]
  14. FOLSYRE NAF [Concomitant]
     Route: 048
  15. CALCIGRAN FORTE [Concomitant]
     Route: 048

REACTIONS (15)
  - Histiocytosis haematophagic [Recovered/Resolved]
  - Bone marrow disorder [Recovered/Resolved]
  - General physical health deterioration [Recovered/Resolved]
  - Leukopenia [Recovered/Resolved]
  - Thrombocytopenia [Recovered/Resolved]
  - Rash [Recovered/Resolved]
  - Serum ferritin increased [Recovered/Resolved]
  - Parvovirus infection [Recovered/Resolved]
  - Parvovirus B19 test positive [Recovered/Resolved]
  - Pyrexia [Recovered/Resolved]
  - Juvenile idiopathic arthritis [Unknown]
  - Condition aggravated [Unknown]
  - Arthritis [Recovered/Resolved]
  - Pancytopenia [Recovered/Resolved]
  - Erythema infectiosum [Recovered/Resolved]
